FAERS Safety Report 7447813-X (Version None)
Quarter: 2011Q2

REPORT INFORMATION
  Report Type: 
  Country: None (occurrence: None)
  Receive Date: 20110429
  Receipt Date: 20110420
  Transmission Date: 20111010
  Serious: Yes (Hospitalization)
  Sender: FDA-Public Use
  Company Number: US-ASTRAZENECA-2011SE22737

PATIENT
  Age: 84 Year
  Sex: Female
  Weight: 68 kg

DRUGS (3)
  1. BACTRIM DS [Suspect]
     Indication: URINARY TRACT INFECTION
     Dosage: 800/160 MG ONE TABLET TWO TIMES A DAY
     Route: 048
     Dates: start: 20110326, end: 20110404
  2. BACTRIM DS [Suspect]
     Indication: BREAST INFECTION
     Dosage: 800/160 MG ONE TABLET TWO TIMES A DAY
     Route: 048
     Dates: start: 20110326, end: 20110404
  3. ARIMIDEX [Suspect]
     Route: 048
     Dates: start: 20110301

REACTIONS (2)
  - HOSPITALISATION [None]
  - AGEUSIA [None]
